FAERS Safety Report 6977388-0 (Version None)
Quarter: 2010Q3

REPORT INFORMATION
  Report Type: 
  Country: None (occurrence: None)
  Receive Date: 20100910
  Receipt Date: 20100830
  Transmission Date: 20110219
  Serious: No
  Sender: FDA-Public Use
  Company Number: US-B.I. PHARMACEUTICALS,INC./RIDGEFIELD-2010-BP-09922BP

PATIENT
  Sex: Female

DRUGS (19)
  1. SPIRIVA [Suspect]
     Indication: DYSPNOEA
     Dosage: 18 MCG
     Route: 055
  2. SPIRIVA [Suspect]
     Indication: WHEEZING
  3. SPIRIVA [Suspect]
     Indication: EMPHYSEMA
  4. PREDNISONE [Concomitant]
  5. PHENEGREN [Concomitant]
  6. ADVIL LIQUI-GELS [Concomitant]
  7. CITRACAL [Concomitant]
     Indication: OSTEOPOROSIS
  8. DIFLUCAN [Concomitant]
     Indication: CANDIDIASIS
  9. LIPITOR [Concomitant]
     Indication: BLOOD CHOLESTEROL INCREASED
  10. OXYCONTIN [Concomitant]
  11. PERCOCET [Concomitant]
  12. XOPONEX [Concomitant]
  13. VITAMIN D [Concomitant]
     Indication: OSTEOPOROSIS
  14. RECLAST [Concomitant]
     Indication: OSTEOPOROSIS
  15. CELEXA [Concomitant]
     Indication: DEPRESSION
  16. LOTRISONE [Concomitant]
  17. KETOCONAZOLE [Concomitant]
  18. ASCORBIC ACID [Concomitant]
  19. MULTI-VITAMIN [Concomitant]

REACTIONS (4)
  - BRONCHIAL IRRITATION [None]
  - BRONCHOSPASM [None]
  - COUGH [None]
  - PHARYNGEAL INFLAMMATION [None]
